FAERS Safety Report 21971239 (Version 1)
Quarter: 2023Q1

REPORT INFORMATION
  Report Type: Spontaneous
  Country: US (occurrence: None)
  Receive Date: 20230209
  Receipt Date: 20230209
  Transmission Date: 20230418
  Serious: Yes (Other)
  Sender: FDA-Public Use
  Company Number: 2023A028768

PATIENT
  Age: 83 Year
  Sex: Female

DRUGS (6)
  1. FARXIGA [Suspect]
     Active Substance: DAPAGLIFLOZIN PROPANEDIOL
     Indication: Chronic kidney disease
     Dosage: 10 ONCE
     Route: 048
     Dates: start: 20221207, end: 20230201
  2. FARXIGA [Suspect]
     Active Substance: DAPAGLIFLOZIN PROPANEDIOL
     Indication: Cardiac failure
     Dosage: 10 ONCE
     Route: 048
     Dates: start: 20221207, end: 20230201
  3. CRESTOR [Concomitant]
     Active Substance: ROSUVASTATIN CALCIUM
  4. AMLODAPINE [Concomitant]
  5. LOSARTAN [Concomitant]
     Active Substance: LOSARTAN
  6. AMILORIDE [Concomitant]
     Active Substance: AMILORIDE

REACTIONS (4)
  - Urinary tract infection [Recovering/Resolving]
  - Blood glucose increased [Recovering/Resolving]
  - Glomerular filtration rate abnormal [Recovering/Resolving]
  - Microalbuminuria [Recovering/Resolving]
